FAERS Safety Report 14673023 (Version 1)
Quarter: 2018Q1

REPORT INFORMATION
  Report Type: Spontaneous
  Country: US (occurrence: US)
  Receive Date: 20180323
  Receipt Date: 20180323
  Transmission Date: 20180509
  Serious: Yes (Hospitalization, Other)
  Sender: FDA-Public Use
  Company Number: US-DRREDDYS-USA/USA/18/0096936

PATIENT
  Age: 68 Year
  Sex: Male

DRUGS (1)
  1. IBUPROFEN. [Suspect]
     Active Substance: IBUPROFEN
     Indication: OSTEOARTHRITIS
     Dosage: CHRONIC EXCESSIVE DOSES
     Route: 065

REACTIONS (2)
  - Drug abuse [Unknown]
  - Gastritis bacterial [Recovered/Resolved]
